FAERS Safety Report 25996036 (Version 1)
Quarter: 2025Q4

REPORT INFORMATION
  Report Type: Spontaneous
  Country: US (occurrence: US)
  Receive Date: 20251104
  Receipt Date: 20251104
  Transmission Date: 20260118
  Serious: Yes (Life-Threatening, Other)
  Sender: BRACCO
  Company Number: US-BRACCO-2025US07556

PATIENT
  Age: 52 Year
  Sex: Male

DRUGS (4)
  1. LUMASON [Suspect]
     Active Substance: SULFUR HEXAFLUORIDE
     Indication: Echocardiogram
     Dosage: 4.5 ML, TOTAL DOSE (2 ML AT 2:37, AT 2:39 2.5 ML)
     Route: 042
     Dates: start: 20251029, end: 20251029
  2. LUMASON [Suspect]
     Active Substance: SULFUR HEXAFLUORIDE
     Indication: Echocardiogram
     Dosage: 4.5 ML, TOTAL DOSE (2 ML AT 2:37, AT 2:39 2.5 ML)
     Route: 042
     Dates: start: 20251029, end: 20251029
  3. LUMASON [Suspect]
     Active Substance: SULFUR HEXAFLUORIDE
     Indication: Echocardiogram
     Dosage: 4.5 ML, TOTAL DOSE (2 ML AT 2:37, AT 2:39 2.5 ML)
     Route: 042
     Dates: start: 20251029, end: 20251029
  4. EPINEPHRINE [Concomitant]
     Active Substance: EPINEPHRINE
     Dosage: UNK
     Dates: end: 20251029

REACTIONS (2)
  - Cardiac arrest [Recovering/Resolving]
  - Supraventricular tachycardia [Recovering/Resolving]

NARRATIVE: CASE EVENT DATE: 20251029
